FAERS Safety Report 4692249-8 (Version None)
Quarter: 2005Q2

REPORT INFORMATION
  Report Type: 
  Country: None (occurrence: None)
  Receive Date: 20050614
  Receipt Date: 20050602
  Transmission Date: 20051028
  Serious: Yes (Other)
  Sender: FDA-Public Use
  Company Number: GB-2005-009608

PATIENT
  Sex: Female

DRUGS (2)
  1. MIRENA [Suspect]
     Dosage: INTRA-UTERINE
     Route: 015
  2. TAMOXIFEN (TAMOXIFEN) [Concomitant]

REACTIONS (1)
  - CEREBROVASCULAR ACCIDENT [None]
